FAERS Safety Report 13390615 (Version 2)
Quarter: 2017Q3

REPORT INFORMATION
  Report Type: Spontaneous
  Country: US (occurrence: US)
  Receive Date: 20170331
  Receipt Date: 20170731
  Transmission Date: 20171127
  Serious: No
  Sender: FDA-Public Use
  Company Number: US-PFIZER INC-2017135530

PATIENT
  Sex: Female

DRUGS (2)
  1. METHOTREXATE. [Concomitant]
     Active Substance: METHOTREXATE
     Dosage: 6 DF, WEEKLY
  2. XELJANZ XR [Suspect]
     Active Substance: TOFACITINIB CITRATE
     Dosage: 11 MG, DAILY

REACTIONS (17)
  - Weight increased [Unknown]
  - Amenorrhoea [Unknown]
  - Arthralgia [Not Recovered/Not Resolved]
  - Musculoskeletal stiffness [Unknown]
  - Tenderness [Unknown]
  - Hypoaesthesia [Unknown]
  - Fatigue [Unknown]
  - Anxiety [Unknown]
  - Skin lesion [Unknown]
  - Dry mouth [Unknown]
  - Joint swelling [Recovering/Resolving]
  - Acne [Unknown]
  - Skin disorder [Unknown]
  - Blister [Unknown]
  - Smear cervix abnormal [Unknown]
  - Restlessness [Unknown]
  - Arthritis [Unknown]
